FAERS Safety Report 22175649 (Version 2)
Quarter: 2023Q2

REPORT INFORMATION
  Report Type: Spontaneous
  Country: US (occurrence: None)
  Receive Date: 20230405
  Receipt Date: 20230415
  Transmission Date: 20230722
  Serious: Yes (Hospitalization, Other)
  Sender: FDA-Public Use
  Company Number: US-MLMSERVICE-20230322-4177186-1

PATIENT
  Age: 70 Year
  Sex: Male

DRUGS (1)
  1. TACROLIMUS [Suspect]
     Active Substance: TACROLIMUS
     Indication: Immunosuppressant drug therapy
     Dosage: LOW DOSE

REACTIONS (2)
  - Liver abscess [Recovering/Resolving]
  - Mycobacterium fortuitum infection [Recovering/Resolving]
